FAERS Safety Report 6132065-3 (Version None)
Quarter: 2009Q1

REPORT INFORMATION
  Report Type: 
  Country: None (occurrence: None)
  Receive Date: 20090325
  Receipt Date: 20090316
  Transmission Date: 20090719
  Serious: Yes (Other)
  Sender: FDA-Public Use
  Company Number: US-PFIZER INC-2009184356

PATIENT
  Sex: Female

DRUGS (4)
  1. NICOTROL [Suspect]
  2. CHANTIX [Suspect]
  3. MIRAPEX [Suspect]
  4. NICOTINE [Suspect]

REACTIONS (5)
  - IMPAIRED DRIVING ABILITY [None]
  - LOSS OF CONSCIOUSNESS [None]
  - MANIA [None]
  - MEDICATION ERROR [None]
  - NASAL DISCOMFORT [None]
